FAERS Safety Report 10504842 (Version 1)
Quarter: 2014Q3

REPORT INFORMATION
  Report Type: Spontaneous
  Country: US (occurrence: None)
  Receive Date: 20140929
  Receipt Date: 20140929
  Transmission Date: 20150326
  Serious: Yes (Life-Threatening)
  Sender: FDA-Public Use
  Company Number: US-2014-11970

PATIENT
  Age: 19 Year
  Sex: Female

DRUGS (3)
  1. ABILIFY MAINTENA [Suspect]
     Active Substance: ARIPIPRAZOLE
     Indication: SCHIZOAFFECTIVE DISORDER
     Dates: start: 20140729, end: 20140729
  2. ABILIFY [Concomitant]
     Active Substance: ARIPIPRAZOLE
  3. PROZAC [Concomitant]
     Active Substance: FLUOXETINE HYDROCHLORIDE

REACTIONS (7)
  - Dystonia [None]
  - Musculoskeletal stiffness [None]
  - Off label use [None]
  - Catatonia [None]
  - Gait disturbance [None]
  - Sluggishness [None]
  - Cogwheel rigidity [None]

NARRATIVE: CASE EVENT DATE: 20140807
